FAERS Safety Report 4642213-X (Version None)
Quarter: 2005Q2

REPORT INFORMATION
  Report Type: 
  Country: None (occurrence: None)
  Receive Date: 20050421
  Receipt Date: 20050404
  Transmission Date: 20051028
  Serious: Yes (Hospitalization)
  Sender: FDA-Public Use
  Company Number: TRP_0060_2005

PATIENT
  Age: 55 Year
  Sex: Female

DRUGS (4)
  1. RIBASPHERE [Suspect]
     Indication: HEPATITIS C
     Dates: start: 20041111
  2. EFFEXOR XR [Concomitant]
  3. LOPRESSOR [Concomitant]
  4. XANAX [Concomitant]

REACTIONS (7)
  - ASTHENIA [None]
  - CHEST PAIN [None]
  - FATIGUE [None]
  - HYPOTENSION [None]
  - INSOMNIA [None]
  - NAUSEA [None]
  - WEIGHT DECREASED [None]
